FAERS Safety Report 9632364 (Version 1)
Quarter: 2013Q4

REPORT INFORMATION
  Report Type: Spontaneous
  Country: US (occurrence: None)
  Receive Date: 20131018
  Receipt Date: 20131018
  Transmission Date: 20140711
  Serious: No
  Sender: FDA-Public Use
  Company Number: None

PATIENT
  Age: 71 Year
  Sex: Female
  Weight: 78 kg

DRUGS (1)
  1. ISOVUE-370 [Suspect]
     Indication: ABDOMEN SCAN
     Route: 042
     Dates: start: 20131015, end: 20131015

REACTIONS (1)
  - Urticaria [None]
